FAERS Safety Report 20922145 (Version 1)
Quarter: 2022Q2

REPORT INFORMATION
  Report Type: Report from Study
  Country: CA (occurrence: CA)
  Receive Date: 20220607
  Receipt Date: 20220607
  Transmission Date: 20220720
  Serious: Yes (Hospitalization)
  Sender: FDA-Public Use
  Company Number: CA-ABBVIE-22K-028-4421834-00

PATIENT
  Sex: Male

DRUGS (1)
  1. HUMIRA [Suspect]
     Active Substance: ADALIMUMAB
     Indication: Crohn^s disease
     Route: 058
     Dates: start: 20200408, end: 202205

REACTIONS (8)
  - Illness [Unknown]
  - Weight decreased [Unknown]
  - Mucosal inflammation [Unknown]
  - Oesophageal ulcer [Unknown]
  - COVID-19 [Unknown]
  - Influenza [Unknown]
  - Pain [Unknown]
  - Streptococcal infection [Unknown]
